FAERS Safety Report 13266045 (Version 1)
Quarter: 2017Q1

REPORT INFORMATION
  Report Type: Spontaneous
  Country: US (occurrence: US)
  Receive Date: 20170223
  Receipt Date: 20170223
  Transmission Date: 20170428
  Serious: No
  Sender: FDA-Public Use
  Company Number: US-LUNDBECK-DKLU2023230

PATIENT
  Sex: Male

DRUGS (7)
  1. MIDODRINE [Suspect]
     Active Substance: MIDODRINE
     Route: 065
  2. NORTHERA [Suspect]
     Active Substance: DROXIDOPA
     Indication: PRODUCT USED FOR UNKNOWN INDICATION
     Route: 065
  3. NORTHERA [Suspect]
     Active Substance: DROXIDOPA
     Dosage: LOWER DOSE
     Route: 065
     Dates: start: 20161128
  4. NORTHERA [Suspect]
     Active Substance: DROXIDOPA
     Route: 065
  5. MIDODRINE [Suspect]
     Active Substance: MIDODRINE
     Indication: PRODUCT USED FOR UNKNOWN INDICATION
     Route: 065
  6. MIDODRINE [Suspect]
     Active Substance: MIDODRINE
     Route: 065
  7. MIDODRINE [Suspect]
     Active Substance: MIDODRINE
     Dosage: RESTARTED FULL DOSE
     Route: 065

REACTIONS (5)
  - Dizziness [Unknown]
  - Blood pressure decreased [Unknown]
  - Diarrhoea [Unknown]
  - Presyncope [Unknown]
  - Fatigue [Unknown]
